FAERS Safety Report 9657303 (Version 3)
Quarter: 2014Q2

REPORT INFORMATION
  Report Type: Spontaneous
  Country: US (occurrence: US)
  Receive Date: 20131030
  Receipt Date: 20140515
  Transmission Date: 20141212
  Serious: Yes (Life-Threatening, Other)
  Sender: FDA-Public Use
  Company Number: US-BAYER-2013-129228

PATIENT
  Age: 74 Year
  Sex: Male
  Weight: 94 kg

DRUGS (13)
  1. XOFIGO [Suspect]
     Indication: HORMONE-REFRACTORY PROSTATE CANCER
     Dosage: ^133.9^
     Route: 042
     Dates: start: 20130726, end: 20130726
  2. XOFIGO [Suspect]
     Indication: HORMONE-REFRACTORY PROSTATE CANCER
     Dosage: ^122.5^
     Route: 042
     Dates: start: 20130827, end: 20130827
  3. XOFIGO [Suspect]
     Indication: HORMONE-REFRACTORY PROSTATE CANCER
     Dosage: 123 UCURIES
     Route: 042
     Dates: start: 20131003, end: 20131003
  4. CELEBREX [Concomitant]
  5. VALIUM [Concomitant]
  6. PAXIL [Concomitant]
  7. ZOCOR [Concomitant]
  8. LANTUS [Concomitant]
  9. AMITRIPTYLINE [Concomitant]
  10. ATENOLOL [Concomitant]
  11. OXYCODONE [Concomitant]
  12. AMIODARONE [Concomitant]
  13. PREDNISONE [Concomitant]

REACTIONS (3)
  - Haemoglobin decreased [None]
  - Platelet count decreased [None]
  - Haemorrhage [None]
